FAERS Safety Report 10975993 (Version 1)
Quarter: 2015Q2

REPORT INFORMATION
  Report Type: Other
  Country: GB (occurrence: GB)
  Receive Date: 20150401
  Receipt Date: 20150401
  Transmission Date: 20150821
  Serious: Yes (Other)
  Sender: FDA-Public Use
  Company Number: GB-MYLANLABS-2015M1009638

PATIENT

DRUGS (5)
  1. PROCHLORPERAZINE. [Concomitant]
     Active Substance: PROCHLORPERAZINE
     Dosage: 1 DF, TID
     Dates: start: 20150210, end: 20150217
  2. BECONASE AQ [Concomitant]
     Active Substance: BECLOMETHASONE DIPROPIONATE MONOHYDRATE
     Dosage: 2 DF, BID (TWO PUFFS INTO EACH NOSTRIL TWICE DAILY)
     Route: 045
     Dates: start: 20150309
  3. DOXYCYCLINE. [Suspect]
     Active Substance: DOXYCYCLINE
     Dosage: 1 DF, BID
     Dates: start: 20150309
  4. CLARITHROMYCIN. [Concomitant]
     Active Substance: CLARITHROMYCIN
     Dosage: 1 DF, BID
     Dates: start: 20150310
  5. CLARITHROMYCIN. [Concomitant]
     Active Substance: CLARITHROMYCIN
     Dosage: 1 DF, 12 HOURLY
     Dates: start: 20141212, end: 20141222

REACTIONS (1)
  - Mouth swelling [Not Recovered/Not Resolved]

NARRATIVE: CASE EVENT DATE: 20150310
